FAERS Safety Report 6669298-3 (Version None)
Quarter: 2010Q2

REPORT INFORMATION
  Report Type: 
  Country: None (occurrence: None)
  Receive Date: 20100402
  Receipt Date: 20100328
  Transmission Date: 20101027
  Serious: Yes (Hospitalization)
  Sender: FDA-Public Use
  Company Number: PIR# 1003053

PATIENT
  Age: 51 Year
  Sex: Female

DRUGS (1)
  1. CEFUROXIME [Suspect]

REACTIONS (11)
  - BLOOD ALBUMIN DECREASED [None]
  - BLOOD PRESSURE SYSTOLIC INCREASED [None]
  - GLOMERULONEPHRITIS MEMBRANOUS [None]
  - HAEMOGLOBIN DECREASED [None]
  - KIDNEY FIBROSIS [None]
  - NEPHROSCLEROSIS [None]
  - OEDEMA PERIPHERAL [None]
  - PROTEINURIA [None]
  - RED BLOOD CELL SEDIMENTATION RATE INCREASED [None]
  - RENAL FAILURE ACUTE [None]
  - RENAL TUBULAR ATROPHY [None]
